FAERS Safety Report 4679642-4 (Version None)
Quarter: 2005Q2

REPORT INFORMATION
  Report Type: 
  Country: None (occurrence: None)
  Receive Date: 20050314
  Receipt Date: 20050314
  Transmission Date: 20051028
  Serious: No
  Sender: FDA-Public Use
  Company Number: None

PATIENT
  Age: 39 Year
  Sex: Female
  Weight: 77.1115 kg

DRUGS (4)
  1. OXYCONTIN [Suspect]
     Indication: ARTHRITIS
     Dosage: 80 MG ONE Q12H PO
     Route: 048
     Dates: start: 20040525
  2. OXYCONTIN [Suspect]
     Indication: BACK PAIN
     Dosage: 80 MG ONE Q12H PO
     Route: 048
     Dates: start: 20040525
  3. OXYCONTIN [Suspect]
     Indication: INTERVERTEBRAL DISC PROTRUSION
     Dosage: 80 MG ONE Q12H PO
     Route: 048
     Dates: start: 20040525
  4. PERCOCET [Concomitant]
     Indication: MULTIPLE SCLEROSIS

REACTIONS (4)
  - ABDOMINAL PAIN [None]
  - NAUSEA [None]
  - PHARMACEUTICAL PRODUCT COMPLAINT [None]
  - VOMITING [None]
